FAERS Safety Report 5911411-7 (Version None)
Quarter: 2008Q4

REPORT INFORMATION
  Report Type: 
  Country: None (occurrence: None)
  Receive Date: 20081007
  Receipt Date: 20080925
  Transmission Date: 20090506
  Serious: Yes (Hospitalization)
  Sender: FDA-Public Use
  Company Number: PL-PFIZER INC-2006123756

PATIENT
  Sex: Female
  Weight: 54 kg

DRUGS (2)
  1. SU-011,248 [Suspect]
     Indication: GASTROINTESTINAL STROMAL TUMOUR
     Route: 048
     Dates: start: 20060307, end: 20060515
  2. SU-011,248 [Suspect]
     Route: 048
     Dates: start: 20060522

REACTIONS (1)
  - ASCITES [None]
